FAERS Safety Report 17062216 (Version 2)
Quarter: 2020Q2

REPORT INFORMATION
  Report Type: Report from Study
  Country: None (occurrence: BR)
  Receive Date: 20191122
  Receipt Date: 20200629
  Transmission Date: 20200713
  Serious: Yes (Other)
  Sender: FDA-Public Use
  Company Number: BR-ABBVIE-18K-020-2281413-00

PATIENT
  Sex: Female
  Weight: 65 kg

DRUGS (10)
  1. MESALAZINE [Concomitant]
     Active Substance: MESALAMINE
     Indication: CROHN^S DISEASE
  2. HUMIRA [Suspect]
     Active Substance: ADALIMUMAB
     Indication: CROHN^S DISEASE
     Dosage: LOADING DOSE
     Route: 058
     Dates: start: 20150101, end: 20150101
  3. HUMIRA [Suspect]
     Active Substance: ADALIMUMAB
     Route: 058
     Dates: start: 2015
  4. HUMIRA [Suspect]
     Active Substance: ADALIMUMAB
     Route: 058
  5. DESOGESTREL [Concomitant]
     Active Substance: DESOGESTREL
     Indication: UTERINE LEIOMYOMA
  6. MESALAZINE [Concomitant]
     Active Substance: MESALAMINE
     Indication: CROHN^S DISEASE
     Route: 048
  7. AZATHIOPRINE. [Concomitant]
     Active Substance: AZATHIOPRINE
     Indication: CROHN^S DISEASE
  8. HUMIRA [Suspect]
     Active Substance: ADALIMUMAB
     Route: 058
  9. POLYVITAMIN [Concomitant]
     Active Substance: VITAMINS
     Indication: PRODUCT USED FOR UNKNOWN INDICATION
  10. DEFLAZACORT [Concomitant]
     Active Substance: DEFLAZACORT
     Indication: CROHN^S DISEASE

REACTIONS (17)
  - Panic disorder [Unknown]
  - Psychotic disorder [Unknown]
  - Pruritus [Not Recovered/Not Resolved]
  - Injection site pain [Unknown]
  - Tinea infection [Unknown]
  - Unevaluable event [Recovered/Resolved]
  - Alopecia [Unknown]
  - Injection site pruritus [Unknown]
  - Memory impairment [Not Recovered/Not Resolved]
  - Skin lesion [Recovering/Resolving]
  - Candida infection [Unknown]
  - Skin discolouration [Recovering/Resolving]
  - Skin texture abnormal [Unknown]
  - Frequent bowel movements [Unknown]
  - Product storage error [Unknown]
  - Depression [Not Recovered/Not Resolved]
  - Facial pain [Recovering/Resolving]

NARRATIVE: CASE EVENT DATE: 2015
